FAERS Safety Report 18711948 (Version 1)
Quarter: 2021Q1

REPORT INFORMATION
  Report Type: Other
  Country: BE (occurrence: BE)
  Receive Date: 20210107
  Receipt Date: 20210107
  Transmission Date: 20210419
  Serious: Yes (Life-Threatening, Hospitalization, Other)
  Sender: FDA-Public Use
  Company Number: BE-APPCO PHARMA LLC-2104061

PATIENT
  Age: 54 Year
  Sex: Female

DRUGS (1)
  1. HYDROXYCHLOROQUINE SULFATE. [Suspect]
     Active Substance: HYDROXYCHLOROQUINE SULFATE
     Indication: PRODUCT USED FOR UNKNOWN INDICATION
     Route: 065

REACTIONS (12)
  - Cardiogenic shock [Recovered/Resolved]
  - Toxicity to various agents [Recovered/Resolved]
  - Ventricular fibrillation [Recovered/Resolved]
  - Intentional overdose [Unknown]
  - Pulmonary oedema [Recovered/Resolved]
  - Electrocardiogram QT prolonged [Recovered/Resolved]
  - Electrocardiogram ST segment depression [Recovered/Resolved]
  - Coma [Recovered/Resolved]
  - Cardiac failure congestive [Recovered/Resolved]
  - Suicide attempt [Unknown]
  - Atrial fibrillation [Recovered/Resolved]
  - Electrocardiogram QRS complex prolonged [Recovered/Resolved]
